FAERS Safety Report 6161304-8 (Version None)
Quarter: 2009Q2

REPORT INFORMATION
  Report Type: 
  Country: None (occurrence: None)
  Receive Date: 20090421
  Receipt Date: 20090416
  Transmission Date: 20091009
  Serious: No
  Sender: FDA-Public Use
  Company Number: US-B.I. PHARMACEUTICALS,INC./RIDGEFIELD-2009-BP-03722BP

PATIENT
  Age: 71 Year
  Sex: Male
  Weight: 79.5 kg

DRUGS (2)
  1. SPIRIVA [Suspect]
     Indication: CHRONIC OBSTRUCTIVE PULMONARY DISEASE
     Dosage: 18MCG
     Route: 055
  2. ADVAIR HFA [Concomitant]
     Route: 055
     Dates: start: 20081208

REACTIONS (1)
  - BENIGN PROSTATIC HYPERPLASIA [None]
